FAERS Safety Report 17254226 (Version 2)
Quarter: 2020Q1

REPORT INFORMATION
  Report Type: Spontaneous
  Country: FR (occurrence: FR)
  Receive Date: 20200109
  Receipt Date: 20200129
  Transmission Date: 20200409
  Serious: Yes (Other)
  Sender: FDA-Public Use
  Company Number: FR-PFIZER INC-2020004550

PATIENT
  Age: 27 Year
  Sex: Female
  Weight: 51 kg

DRUGS (5)
  1. OPTIMIZETTE [Concomitant]
     Active Substance: DESOGESTREL
     Dosage: UNK
     Route: 048
  2. CHAMPIX [Suspect]
     Active Substance: VARENICLINE TARTRATE
     Dosage: 0.5 MG, DAILY AT D1, D2, D3
     Route: 048
     Dates: start: 20191201, end: 20191203
  3. CHAMPIX [Suspect]
     Active Substance: VARENICLINE TARTRATE
     Dosage: 0.5 MG, TWICE DAILY AT D4 TO D7
     Dates: start: 20191204, end: 20191207
  4. CHAMPIX [Suspect]
     Active Substance: VARENICLINE TARTRATE
     Dosage: 1 MG, TWICE DAILY
     Dates: start: 20191208, end: 20200101
  5. METEOXANE [PHLOROGLUCINOL;SIMETICONE] [Concomitant]
     Active Substance: DIMETHICONE\PHLOROGLUCINOL
     Dosage: UNK
     Route: 048

REACTIONS (9)
  - Decreased appetite [Unknown]
  - Gastrointestinal pain [Recovering/Resolving]
  - Irritable bowel syndrome [Unknown]
  - Flatulence [Unknown]
  - Abdominal rigidity [Recovered/Resolved]
  - Diarrhoea [Recovered/Resolved]
  - Abdominal pain upper [Unknown]
  - Stress [Unknown]
  - Nausea [Recovering/Resolving]

NARRATIVE: CASE EVENT DATE: 20191215
